FAERS Safety Report 7369245-5 (Version None)
Quarter: 2011Q1

REPORT INFORMATION
  Report Type: 
  Country: None (occurrence: None)
  Receive Date: 20110314
  Receipt Date: 20110225
  Transmission Date: 20110831
  Serious: Yes (Hospitalization)
  Sender: FDA-Public Use
  Company Number: 2011MA001847

PATIENT
  Age: 61 Year
  Sex: Male

DRUGS (3)
  1. ENALAPRIL [Concomitant]
  2. SPIRONOLACTONE [Suspect]
     Indication: HYPERTENSION
     Dosage: 50 MG;OD;PO
     Route: 048
  3. FUROSEMIDE [Concomitant]

REACTIONS (7)
  - BLOOD PRESSURE DECREASED [None]
  - OEDEMA PERIPHERAL [None]
  - TACHYPNOEA [None]
  - ABDOMINAL PAIN [None]
  - RENAL FAILURE ACUTE [None]
  - DIARRHOEA [None]
  - HYPERKALAEMIA [None]
